FAERS Safety Report 9824731 (Version 2)
Quarter: 2014Q1

REPORT INFORMATION
  Report Type: Spontaneous
  Country: CH (occurrence: CH)
  Receive Date: 20140117
  Receipt Date: 20140213
  Transmission Date: 20141002
  Serious: Yes (Hospitalization)
  Sender: FDA-Public Use
  Company Number: CH-AMGEN-CHESP2014002457

PATIENT
  Age: 63 Year
  Sex: Female
  Weight: 72 kg

DRUGS (8)
  1. PROLIA [Suspect]
     Indication: OSTEOPOROSIS POSTMENOPAUSAL
     Dosage: 60 MG, UNK
     Route: 058
     Dates: start: 20130923
  2. CORDARONE [Concomitant]
     Indication: ATRIAL FIBRILLATION
     Dosage: 200 MG, UNK
  3. MADOPAR [Concomitant]
     Indication: PARKINSON^S DISEASE
  4. TRAJENTA [Concomitant]
     Indication: DIABETES MELLITUS
  5. EUTHYROX [Concomitant]
     Indication: THYROID DISORDER
  6. REMERON [Concomitant]
  7. CALCIUM [Concomitant]
  8. VITAMIN D                          /00318501/ [Concomitant]

REACTIONS (1)
  - Blood calcium decreased [Recovered/Resolved]
